FAERS Safety Report 19725864 (Version 1)
Quarter: 2021Q3

REPORT INFORMATION
  Report Type: Spontaneous
  Country: US (occurrence: US)
  Receive Date: 20210819
  Receipt Date: 20210819
  Transmission Date: 20211014
  Serious: No
  Sender: FDA-Public Use
  Company Number: US-MANNKIND CORPORATION-2021MK000037

PATIENT
  Age: 49 Year
  Sex: Male
  Weight: 56.3 kg

DRUGS (5)
  1. AFREZZA [Suspect]
     Active Substance: INSULIN HUMAN
  2. TRESIBA [Concomitant]
     Active Substance: INSULIN DEGLUDEC
     Indication: TYPE 1 DIABETES MELLITUS
     Dates: start: 202011
  3. LANTUS [Concomitant]
     Active Substance: INSULIN GLARGINE
     Indication: TYPE 1 DIABETES MELLITUS
     Route: 058
     Dates: end: 202011
  4. AFREZZA [Suspect]
     Active Substance: INSULIN HUMAN
     Indication: TYPE 1 DIABETES MELLITUS
  5. AFREZZA [Suspect]
     Active Substance: INSULIN HUMAN

REACTIONS (3)
  - Blood glucose increased [Not Recovered/Not Resolved]
  - Drug ineffective [Not Recovered/Not Resolved]
  - Blood glucose decreased [Not Recovered/Not Resolved]

NARRATIVE: CASE EVENT DATE: 202101
